FAERS Safety Report 11931937 (Version 3)
Quarter: 2016Q2

REPORT INFORMATION
  Report Type: Report from Study
  Country: US (occurrence: US)
  Receive Date: 20160120
  Receipt Date: 20160422
  Transmission Date: 20160815
  Serious: Yes (Other)
  Sender: FDA-Public Use
  Company Number: US-AMGEN-USASL2016005317

PATIENT
  Age: 54 Year
  Sex: Female

DRUGS (1)
  1. ENBREL [Suspect]
     Active Substance: ETANERCEPT
     Indication: RHEUMATOID ARTHRITIS
     Dosage: 50 MG, QWK
     Route: 065
     Dates: start: 20151103, end: 20160405

REACTIONS (11)
  - Muscle spasms [Unknown]
  - Emphysema [Unknown]
  - Pyrexia [Unknown]
  - Vomiting [Unknown]
  - Chills [Unknown]
  - Pain [Unknown]
  - Infected bite [Not Recovered/Not Resolved]
  - Cyst drainage [Unknown]
  - Infected cyst [Unknown]
  - Malaise [Unknown]
  - Secretion discharge [Unknown]

NARRATIVE: CASE EVENT DATE: 201511
